FAERS Safety Report 8516989-5 (Version None)
Quarter: 2012Q3

REPORT INFORMATION
  Report Type: 
  Country: None (occurrence: None)
  Receive Date: 20120718
  Receipt Date: 20120711
  Transmission Date: 20120928
  Serious: Yes (Life-Threatening, Hospitalization)
  Sender: FDA-Public Use
  Company Number: GB-SANOFI-AVENTIS-2012SA049680

PATIENT
  Sex: Male
  Weight: 33 kg

DRUGS (1)
  1. FEXOFENADINE HCL [Suspect]
     Dosage: HE HAS BEEN ON TELFAST 30MG TWICE A DAY FOR 4 YEARS.
     Route: 065
     Dates: start: 20080101, end: 20120615

REACTIONS (6)
  - PORTAL HYPERTENSION [None]
  - SPLENOMEGALY [None]
  - LIVER DISORDER [None]
  - HAEMATURIA [None]
  - HEPATIC CIRRHOSIS [None]
  - FATIGUE [None]
